FAERS Safety Report 21440568 (Version 1)
Quarter: 2022Q4

REPORT INFORMATION
  Report Type: Spontaneous
  Country: US (occurrence: None)
  Receive Date: 20221009
  Receipt Date: 20221009
  Transmission Date: 20230113
  Serious: Yes (Hospitalization)
  Sender: FDA-Public Use
  Company Number: None

PATIENT
  Age: 36 Year
  Sex: Female
  Weight: 64.35 kg

DRUGS (5)
  1. OMEPRAZOLE MAGNESIUM [Suspect]
     Active Substance: OMEPRAZOLE MAGNESIUM
     Indication: Gastrooesophageal reflux disease
     Dosage: OTHER QUANTITY : 1 CAPSULE(S);?FREQUENCY : DAILY;?
     Route: 048
     Dates: start: 20221008, end: 20221008
  2. TRINTELLIX [Concomitant]
     Active Substance: VORTIOXETINE HYDROBROMIDE
  3. NALTREXONE [Concomitant]
     Active Substance: NALTREXONE
  4. LORATADINE [Concomitant]
     Active Substance: LORATADINE
  5. FLONASE [Concomitant]
     Active Substance: FLUTICASONE PROPIONATE

REACTIONS (11)
  - Nausea [None]
  - Vomiting [None]
  - Rash [None]
  - Heart rate increased [None]
  - Blood pressure increased [None]
  - Diarrhoea [None]
  - Skin burning sensation [None]
  - Paraesthesia [None]
  - Abdominal pain [None]
  - Allergic reaction to excipient [None]
  - Drug hypersensitivity [None]

NARRATIVE: CASE EVENT DATE: 20221008
